FAERS Safety Report 24754219 (Version 1)
Quarter: 2024Q4

REPORT INFORMATION
  Report Type: Spontaneous
  Country: US (occurrence: None)
  Receive Date: 20241218
  Receipt Date: 20241218
  Transmission Date: 20250114
  Serious: Yes (Disabling, Other)
  Sender: Public
  Company Number: None

PATIENT
  Age: 14 Year
  Sex: Female
  Weight: 60.75 kg

DRUGS (5)
  1. QBREXZA [Suspect]
     Active Substance: GLYCOPYRRONIUM TOSYLATE
     Indication: Hyperhidrosis
     Dosage: 1 SINGLE USE CLOTH  DAILY TOPICAL
     Route: 061
     Dates: start: 20241128, end: 20241212
  2. omni pod 5 [Concomitant]
  3. dexcom 6 [Concomitant]
  4. HUMALOG [Concomitant]
     Active Substance: INSULIN LISPRO
  5. MELATONIN [Concomitant]
     Active Substance: MELATONIN

REACTIONS (2)
  - Blindness [None]
  - Mydriasis [None]

NARRATIVE: CASE EVENT DATE: 20241209
